FAERS Safety Report 8881547 (Version 1)
Quarter: 2012Q4

REPORT INFORMATION
  Report Type: 
  Country: SE (occurrence: SE)
  Receive Date: 20121101
  Receipt Date: 20121101
  Transmission Date: 20130627
  Serious: Yes (Hospitalization)
  Sender: FDA-Public Use
  Company Number: SE-PFIZER INC-2012269112

PATIENT
  Age: 35 Year
  Sex: Female
  Weight: 67 kg

DRUGS (16)
  1. GENOTROPIN [Suspect]
     Indication: PANHYPOPITUITARISM
     Dosage: 0.4 mg, 1x/day, 7 injections/week
     Route: 058
     Dates: start: 20061015
  2. ACTIVELLE [Concomitant]
     Indication: LH DECREASED
     Dosage: UNK
     Dates: start: 19950101
  3. ACTIVELLE [Concomitant]
     Indication: FSH DECREASED
  4. ACTIVELLE [Concomitant]
     Indication: HYPOGONADISM FEMALE
  5. FOSAMAX [Concomitant]
     Indication: OSTEOPOROSIS
     Dosage: UNK
     Dates: start: 19950101
  6. HIPREX [Concomitant]
     Indication: URINARY TRACT DISORDER NOS
     Dosage: UNK
     Dates: start: 19950101
  7. IMMUNOGLOBULINS [Concomitant]
     Indication: IMMUNODEFICIENCY
     Dosage: UNK
     Dates: start: 19950101
  8. KALCIPOS [Concomitant]
     Indication: OSTEOPOROSIS
     Dosage: UNK
     Dates: start: 19950101
  9. LEVAXIN [Concomitant]
     Indication: TSH DECREASED
     Dosage: UNK
     Dates: start: 19950101
  10. LEVAXIN [Concomitant]
     Indication: PRIMARY HYPOTHYROIDISM
  11. MINIRIN [Concomitant]
     Indication: ADH DECREASED
     Dosage: UNK
     Dates: start: 19980501
  12. METHOTREXATE [Concomitant]
     Indication: RHEUMATOID ARTHRITIS
     Dosage: UNK
     Dates: start: 20070416
  13. SPIRONOLAKTON [Concomitant]
     Indication: OEDEMA
     Dosage: UNK
     Dates: start: 20060517
  14. FOLACIN [Concomitant]
     Indication: FOLIC ACID DEFICIENCY
     Dosage: UNK
     Dates: start: 20070416
  15. PRASTERONE [Concomitant]
     Indication: DEHYDROEPIANDROSTERONE DECREASED
     Dosage: UNK
     Dates: start: 20030501
  16. MEDROLE [Concomitant]
     Indication: ACTH DECREASED
     Dosage: UNK
     Dates: start: 20060517

REACTIONS (1)
  - Granulomatosis with polyangiitis [Unknown]
